FAERS Safety Report 7451254-9 (Version None)
Quarter: 2011Q2

REPORT INFORMATION
  Report Type: 
  Country: None (occurrence: None)
  Receive Date: 20110502
  Receipt Date: 20110428
  Transmission Date: 20111010
  Serious: Yes (Death, Hospitalization)
  Sender: FDA-Public Use
  Company Number: PHHY2011IL35817

PATIENT
  Age: 22 Year
  Sex: Male

DRUGS (1)
  1. SANDOSTATIN LAR [Suspect]
     Indication: THYMOMA
     Dosage: 30 MG, EVERY 28 DAYS
     Dates: start: 20100615, end: 20110106

REACTIONS (3)
  - NEOPLASM MALIGNANT [None]
  - PERICARDIAL EFFUSION [None]
  - ARRHYTHMIA [None]
